FAERS Safety Report 11146987 (Version 2)
Quarter: 2015Q3

REPORT INFORMATION
  Report Type: Report from Study
  Country: NL (occurrence: NL)
  Receive Date: 20150528
  Receipt Date: 20150818
  Transmission Date: 20151125
  Serious: Yes (Life-Threatening, Hospitalization, Other)
  Sender: FDA-Public Use
  Company Number: NL-ABBVIE-12P-114-0958363-01

PATIENT
  Age: 75 Year
  Sex: Female
  Weight: 84 kg

DRUGS (18)
  1. HYDROXYZINE [Concomitant]
     Active Substance: HYDROXYZINE\HYDROXYZINE HYDROCHLORIDE
     Indication: PRURITUS
     Dosage: DAILY AS NEEDED
  2. METOPROLOL [Concomitant]
     Active Substance: METOPROLOL
     Indication: HYPERTENSION
  3. ENALAPRIL [Concomitant]
     Active Substance: ENALAPRIL
     Indication: HYPERTENSION
  4. CLOPIDOGREL [Concomitant]
     Active Substance: CLOPIDOGREL BISULFATE
     Indication: AORTIC ANEURYSM
     Dates: start: 20110315, end: 20120530
  5. NAPROXEN. [Concomitant]
     Active Substance: NAPROXEN
     Indication: ARTHRITIS
  6. INEGY [Concomitant]
     Active Substance: EZETIMIBE\SIMVASTATIN
     Indication: CARDIOVASCULAR DISORDER
     Dosage: 10/40 MILLIGRAM
  7. ACETYLSALICYLZUUR [Concomitant]
     Indication: AORTIC ANEURYSM
     Dates: start: 20090129
  8. TRAMADOL. [Concomitant]
     Active Substance: TRAMADOL
     Indication: PAIN MANAGEMENT
  9. HUMIRA [Suspect]
     Active Substance: ADALIMUMAB
     Route: 058
  10. DOVOBET [Concomitant]
     Active Substance: BETAMETHASONE\CALCIPOTRIENE
     Indication: PSORIASIS
     Dosage: 4 DAYS PER WEEK ONCE DAILY
  11. EUMOVATE [Concomitant]
     Active Substance: CLOBETASONE BUTYRATE
     Indication: PSORIASIS
     Dosage: 4 DAYS PER WEEK ONCE DAILY
  12. METHOTREXATE [Concomitant]
     Active Substance: METHOTREXATE
     Indication: ARTHRITIS
  13. PANTOPRAZOLE SODIUM. [Concomitant]
     Active Substance: PANTOPRAZOLE SODIUM
     Indication: PRODUCT USED FOR UNKNOWN INDICATION
  14. FENOTEROL HYDROBROMIDE W/IPRATROPIU [Concomitant]
     Indication: DYSPNOEA
  15. CICLESONIDE [Concomitant]
     Active Substance: CICLESONIDE
     Indication: DYSPNOEA
  16. HUMIRA [Suspect]
     Active Substance: ADALIMUMAB
     Indication: PSORIASIS
     Route: 058
     Dates: start: 20091221, end: 20091221
  17. PREDNISONE. [Concomitant]
     Active Substance: PREDNISONE
     Indication: ARTHRITIS
  18. LEFLUNOMIDE. [Concomitant]
     Active Substance: LEFLUNOMIDE
     Indication: ARTHRITIS

REACTIONS (1)
  - Pulmonary embolism [Recovered/Resolved]

NARRATIVE: CASE EVENT DATE: 20120529
